FAERS Safety Report 23144012 (Version 1)
Quarter: 2023Q4

REPORT INFORMATION
  Report Type: Spontaneous
  Country: PL (occurrence: PL)
  Receive Date: 20231103
  Receipt Date: 20231103
  Transmission Date: 20240109
  Serious: Yes (Other)
  Sender: FDA-Public Use
  Company Number: None

PATIENT
  Age: 70 Year
  Sex: Male
  Weight: 80 kg

DRUGS (2)
  1. VECTIBIX [Suspect]
     Active Substance: PANITUMUMAB
     Indication: Rectal cancer
     Dosage: 400 MG
     Route: 040
     Dates: start: 20190128, end: 20190128
  2. VECTIBIX [Suspect]
     Active Substance: PANITUMUMAB
     Dosage: 100 MG
     Route: 040
     Dates: start: 20190128, end: 20190128

REACTIONS (1)
  - Skin lesion [Recovering/Resolving]
